FAERS Safety Report 13251973 (Version 2)
Quarter: 2017Q2

REPORT INFORMATION
  Report Type: Spontaneous
  Country: FR (occurrence: FR)
  Receive Date: 20170220
  Receipt Date: 20170529
  Transmission Date: 20170830
  Serious: Yes (Other)
  Sender: FDA-Public Use
  Company Number: FR-009507513-1702FRA008009

PATIENT
  Age: 70 Year
  Sex: Male

DRUGS (6)
  1. NEBIVOLOL. [Suspect]
     Active Substance: NEBIVOLOL
     Indication: HYPERTENSION
     Dosage: 1 DF, UNK
     Route: 048
     Dates: start: 201304
  2. INEGY [Suspect]
     Active Substance: EZETIMIBE\SIMVASTATIN
     Indication: DYSLIPIDAEMIA
     Dosage: 1 DF, 1 DAY
     Route: 048
     Dates: start: 201304
  3. THERALENE [Concomitant]
     Active Substance: TRIMEPRAZINE
  4. HAVLANE [Concomitant]
     Active Substance: LOPRAZOLAM
  5. REPAGLINIDE. [Concomitant]
     Active Substance: REPAGLINIDE
  6. BETAHISTINE HYDROCHLORIDE [Concomitant]
     Active Substance: BETAHISTINE HYDROCHLORIDE

REACTIONS (1)
  - Lichen planus [Not Recovered/Not Resolved]

NARRATIVE: CASE EVENT DATE: 201309
